FAERS Safety Report 21876701 (Version 2)
Quarter: 2023Q1

REPORT INFORMATION
  Report Type: Report from Study
  Country: US (occurrence: US)
  Receive Date: 20230118
  Receipt Date: 20230315
  Transmission Date: 20230417
  Serious: Yes (Other)
  Sender: FDA-Public Use
  Company Number: US-ABBVIE-4271267

PATIENT
  Age: 32 Year
  Sex: Male

DRUGS (1)
  1. HUMIRA [Suspect]
     Active Substance: ADALIMUMAB
     Indication: Crohn^s disease
     Dosage: CITRATE FREE
     Route: 058
     Dates: start: 20200811

REACTIONS (5)
  - Asthma [Unknown]
  - Pulmonary fibrosis [Unknown]
  - Bronchitis [Unknown]
  - Influenza [Unknown]
  - Scar [Unknown]

NARRATIVE: CASE EVENT DATE: 20220915
